FAERS Safety Report 5101034-4 (Version None)
Quarter: 2006Q3

REPORT INFORMATION
  Report Type: 
  Country: None (occurrence: None)
  Receive Date: 20060911
  Receipt Date: 20060830
  Transmission Date: 20061208
  Serious: Yes (Other)
  Sender: FDA-Public Use
  Company Number: US-JNJFOC-20060105216

PATIENT
  Sex: Female
  Weight: 60.7 kg

DRUGS (1)
  1. ORTHO EVRA [Suspect]
     Indication: CONTRACEPTION
     Route: 062

REACTIONS (2)
  - PELVIC INFLAMMATORY DISEASE [None]
  - PULMONARY EMBOLISM [None]
